FAERS Safety Report 7914413-4 (Version None)
Quarter: 2011Q4

REPORT INFORMATION
  Report Type: 
  Country: None (occurrence: None)
  Receive Date: 20111115
  Receipt Date: 20111111
  Transmission Date: 20120403
  Serious: No
  Sender: FDA-Public Use
  Company Number: US-PFIZER INC-2011277334

PATIENT
  Sex: Male
  Weight: 70.295 kg

DRUGS (9)
  1. AMLODIPINE [Concomitant]
     Dosage: 5 MG, UNK
  2. DIOVAN [Concomitant]
     Dosage: UNK
  3. DEXAMETHASONE SODIUM PHOSPHATE [Suspect]
     Dosage: 5 MG, 2X/DAY
  4. ACETYLSALICYLIC ACID [Concomitant]
     Dosage: 225 MG, UNK
  5. LIPITOR [Suspect]
     Indication: BLOOD CHOLESTEROL INCREASED
     Dosage: 20 MG, DAILY
  6. NEXIUM [Concomitant]
     Dosage: UNK
  7. COUMADIN [Concomitant]
     Indication: POSTOPERATIVE CARE
     Dosage: UNK
  8. AVODART [Concomitant]
     Indication: PROSTATIC DISORDER
     Dosage: UNK
  9. TAMSULOSIN [Concomitant]
     Indication: PROSTATIC DISORDER
     Dosage: UNK

REACTIONS (3)
  - RASH [None]
  - DRUG INEFFECTIVE [None]
  - PRURITUS [None]
